FAERS Safety Report 8963899 (Version 2)
Quarter: 2013Q1

REPORT INFORMATION
  Report Type: Spontaneous
  Country: US (occurrence: US)
  Receive Date: 20121214
  Receipt Date: 20130313
  Transmission Date: 20140127
  Serious: Yes (Hospitalization)
  Sender: FDA-Public Use
  Company Number: PHEH2012US024612

PATIENT
  Age: 42 Year
  Sex: Female
  Weight: 89 kg

DRUGS (4)
  1. MYFORTIC [Suspect]
     Indication: RENAL TRANSPLANT
     Dosage: 720 MG, BID (MORNING AND NIGHT)
     Route: 048
  2. ORAL CONTRACEPTIVE NOS [Concomitant]
  3. HORMONES [Concomitant]
  4. LIPID MODIFYING AGENTS [Concomitant]

REACTIONS (5)
  - Amnesia [Recovered/Resolved]
  - Sensory loss [Unknown]
  - Motor dysfunction [Unknown]
  - VIIth nerve paralysis [Unknown]
  - Ischaemic stroke [Recovered/Resolved]
